FAERS Safety Report 8053556 (Version 4)
Quarter: 2013Q1

REPORT INFORMATION
  Report Type: Spontaneous
  Country: US (occurrence: US)
  Receive Date: 20110725
  Receipt Date: 20130215
  Transmission Date: 20140127
  Serious: Yes (Hospitalization, Other)
  Sender: FDA-Public Use
  Company Number: US-AMGEN-USASP2010009714

PATIENT
  Age: 82 Year
  Sex: Female
  Weight: 39 kg

DRUGS (8)
  1. PROLIA [Suspect]
     Indication: OSTEOPOROSIS POSTMENOPAUSAL
     Dosage: 60 MG, Q6MO
     Dates: start: 20110924
  2. PROLIA [Suspect]
  3. FOSAMAX [Concomitant]
  4. TRAMADOL [Concomitant]
     Dosage: 1 MG, UNK
  5. TRAMADOL [Concomitant]
  6. MAGNESIUM [Concomitant]
     Dosage: UNK
  7. IBUPROFEN [Concomitant]
     Dosage: UNK
  8. THYROID THERAPY [Concomitant]

REACTIONS (14)
  - Muscle twitching [Not Recovered/Not Resolved]
  - Bone density decreased [Not Recovered/Not Resolved]
  - Muscle spasms [Not Recovered/Not Resolved]
  - Paraesthesia [Not Recovered/Not Resolved]
  - Hypoaesthesia [Not Recovered/Not Resolved]
  - Pneumonia [Not Recovered/Not Resolved]
  - Upper respiratory tract infection [Not Recovered/Not Resolved]
  - Anaemia [Not Recovered/Not Resolved]
  - Cystitis [Not Recovered/Not Resolved]
  - Back pain [Not Recovered/Not Resolved]
  - Myalgia [Not Recovered/Not Resolved]
  - Mobility decreased [Unknown]
  - Pain in extremity [Not Recovered/Not Resolved]
  - Blood cholesterol increased [Not Recovered/Not Resolved]
